FAERS Safety Report 8051429-4 (Version None)
Quarter: 2012Q1

REPORT INFORMATION
  Report Type: 
  Country: None (occurrence: None)
  Receive Date: 20120117
  Receipt Date: 20120111
  Transmission Date: 20120608
  Serious: Yes (Hospitalization, Disabling)
  Sender: FDA-Public Use
  Company Number: KR-ASTRAZENECA-2012SE02333

PATIENT
  Age: 60 Year
  Sex: Female

DRUGS (2)
  1. TRIAMCINOLONE [Suspect]
     Indication: BACK PAIN
     Route: 037
  2. BUPIVACAINE HCL [Suspect]
     Indication: BACK PAIN
     Route: 037

REACTIONS (1)
  - ARACHNOIDITIS [None]
